FAERS Safety Report 18054264 (Version 1)
Quarter: 2020Q3

REPORT INFORMATION
  Report Type: Spontaneous
  Country: ES (occurrence: ES)
  Receive Date: 20200722
  Receipt Date: 20200722
  Transmission Date: 20201103
  Serious: Yes (Other)
  Sender: FDA-Public Use
  Company Number: ES-MYLANLABS-2020M1064737

PATIENT
  Age: 28 Year
  Sex: Female

DRUGS (1)
  1. NEOBRUFEN 600 MG GRANULADO EFERVESCENTE [Suspect]
     Active Substance: IBUPROFEN
     Indication: PRODUCT USED FOR UNKNOWN INDICATION
     Dosage: 600 MILLIGRAM, QD
     Route: 048
     Dates: start: 20140617, end: 20140626

REACTIONS (1)
  - Congenital laryngeal stridor [Unknown]

NARRATIVE: CASE EVENT DATE: 201406
